FAERS Safety Report 8760120 (Version 3)
Quarter: 2012Q4

REPORT INFORMATION
  Report Type: 
  Country: JP (occurrence: JP)
  Receive Date: 20120829
  Receipt Date: 20121217
  Transmission Date: 20130627
  Serious: Yes (Other)
  Sender: FDA-Public Use
  Company Number: JP-ROCHE-1107939

PATIENT
  Age: 0 Year
  Sex: Male

DRUGS (2)
  1. AVASTIN [Suspect]
     Indication: RETINOPATHY OF PREMATURITY
     Route: 031
  2. AVASTIN [Suspect]
     Indication: OFF LABEL USE

REACTIONS (1)
  - Retinal detachment [Unknown]
